FAERS Safety Report 4462413-1 (Version None)
Quarter: 2004Q3

REPORT INFORMATION
  Report Type: 
  Country: None (occurrence: None)
  Receive Date: 20040924
  Receipt Date: 20040913
  Transmission Date: 20050211
  Serious: Yes (Death, Life-Threatening)
  Sender: FDA-Public Use
  Company Number: HQWYE989513SEP04

PATIENT
  Age: 69 Year
  Sex: Male

DRUGS (11)
  1. AMIODARONE HCL [Suspect]
     Indication: VENTRICULAR TACHYCARDIA
     Dosage: SEE IMAGE
     Route: 048
     Dates: start: 20040507, end: 20040520
  2. AMIODARONE HCL [Suspect]
     Indication: VENTRICULAR TACHYCARDIA
     Dosage: SEE IMAGE
     Route: 048
     Dates: start: 20040521, end: 20040601
  3. ZYLORIC (ALLOPURINOL) [Concomitant]
  4. WARFARIN (WARFARIN) [Concomitant]
  5. URSO [Concomitant]
  6. EURODIN (ESTAZOLAM) [Concomitant]
  7. LASIX [Concomitant]
  8. PN TWIN (AMINO ACIDS NOS/CARBOHYDRATES NOS/ ELECTROLYTES NOS) [Concomitant]
  9. VITAJET (CYANOCOBALAMIN/PYRIDOXINE HYDROCHLORIDE/THIAMINE HYDROCHLORID [Concomitant]
  10. C-PARA (VITAMINS NOS) [Concomitant]
  11. ALBUMIN ^BEHRING^ (ALBUMIN NORMAL HUMAN SERUM) [Concomitant]

REACTIONS (2)
  - INTERSTITIAL LUNG DISEASE [None]
  - MULTI-ORGAN FAILURE [None]
